FAERS Safety Report 8094820-2 (Version None)
Quarter: 2012Q1

REPORT INFORMATION
  Report Type: 
  Country: None (occurrence: None)
  Receive Date: 20120129
  Receipt Date: 20111212
  Transmission Date: 20120608
  Serious: No
  Sender: FDA-Public Use
  Company Number: US-ABBOTT-11P-163-0882586-00

PATIENT
  Age: 42 Year
  Sex: Female

DRUGS (3)
  1. COLAZAL [Concomitant]
     Indication: IRRITABLE BOWEL SYNDROME
     Dosage: 3 PILLS, 3 TIMES DAILY
  2. HUMIRA [Suspect]
     Indication: COLITIS ULCERATIVE
     Dates: start: 20111012, end: 20111202
  3. PAXIL [Concomitant]
     Indication: ANXIETY

REACTIONS (2)
  - LOWER RESPIRATORY TRACT INFECTION [None]
  - NASOPHARYNGITIS [None]
